FAERS Safety Report 8856035 (Version 1)
Quarter: 2012Q4

REPORT INFORMATION
  Report Type: Spontaneous
  Country: US (occurrence: None)
  Receive Date: 20121022
  Receipt Date: 20121022
  Transmission Date: 20130627
  Serious: Yes (Other)
  Sender: FDA-Public Use
  Company Number: None

PATIENT
  Age: 60 Year
  Sex: Female
  Weight: 88.45 kg

DRUGS (1)
  1. CYMBALTA [Suspect]
     Indication: DEPRESSION
     Dosage: 20 mg 2 x day po
     Route: 048
     Dates: start: 20071101, end: 20120823

REACTIONS (20)
  - Abdominal pain [None]
  - Liver disorder [None]
  - Gastric disorder [None]
  - Renal disorder [None]
  - Abnormal dreams [None]
  - Dizziness [None]
  - Balance disorder [None]
  - Arthralgia [None]
  - Myalgia [None]
  - Muscular weakness [None]
  - Hypoaesthesia [None]
  - Eye movement disorder [None]
  - Abdominal discomfort [None]
  - Abdominal distension [None]
  - Emotional disorder [None]
  - Anger [None]
  - Anger [None]
  - Tachyphrenia [None]
  - Initial insomnia [None]
  - Nightmare [None]
